FAERS Safety Report 25224574 (Version 1)
Quarter: 2025Q2

REPORT INFORMATION
  Report Type: Spontaneous
  Country: US (occurrence: US)
  Receive Date: 20250422
  Receipt Date: 20250422
  Transmission Date: 20250717
  Serious: Yes (Other)
  Sender: MYLAN
  Company Number: US-MYLANLABS-2025M1032539

PATIENT
  Age: 24 Year
  Sex: Male

DRUGS (1)
  1. METHYLPHENIDATE [Suspect]
     Active Substance: METHYLPHENIDATE
     Indication: Attention deficit hyperactivity disorder

REACTIONS (5)
  - Loss of consciousness [Unknown]
  - Road traffic accident [Unknown]
  - Off label use [Unknown]
  - Product substitution issue [Unknown]
  - Drug effect less than expected [Unknown]
